FAERS Safety Report 16326010 (Version 1)
Quarter: 2019Q2

REPORT INFORMATION
  Report Type: Report from Study
  Country: US (occurrence: US)
  Receive Date: 20190517
  Receipt Date: 20190517
  Transmission Date: 20190711
  Serious: Yes (Other)
  Sender: FDA-Public Use
  Company Number: PHEH2019US020403

PATIENT
  Sex: Female

DRUGS (1)
  1. PROMACTA [Suspect]
     Active Substance: ELTROMBOPAG OLAMINE
     Indication: PRODUCT USED FOR UNKNOWN INDICATION
     Route: 048

REACTIONS (8)
  - Platelet count decreased [Unknown]
  - Blood blister [Unknown]
  - Petechiae [Unknown]
  - Peripheral swelling [Unknown]
  - Cough [Unknown]
  - Malaise [Unknown]
  - Platelet count increased [Unknown]
  - Nervousness [Unknown]
